FAERS Safety Report 22165695 (Version 1)
Quarter: 2023Q2

REPORT INFORMATION
  Report Type: Spontaneous
  Country: US (occurrence: US)
  Receive Date: 20230403
  Receipt Date: 20230403
  Transmission Date: 20230721
  Serious: No
  Sender: FDA-Public Use
  Company Number: US-ELI_LILLY_AND_COMPANY-US202303016100

PATIENT
  Sex: Female

DRUGS (3)
  1. HUMALOG [Suspect]
     Active Substance: INSULIN LISPRO
     Indication: Diabetes mellitus
     Dosage: UNK UNK, UNKNOWN
     Dates: start: 202301
  2. HUMALOG [Suspect]
     Active Substance: INSULIN LISPRO
     Indication: Diabetes mellitus
     Dosage: UNK UNK, UNKNOWN
     Dates: start: 202301
  3. SEMGLEE [INSULIN GLARGINE] [Concomitant]
     Indication: Diabetes mellitus
     Dosage: UNK
     Dates: start: 202301

REACTIONS (3)
  - Blood glucose abnormal [Unknown]
  - Diabetes mellitus inadequate control [Unknown]
  - Insulin resistance [Unknown]
